FAERS Safety Report 23193374 (Version 2)
Quarter: 2023Q4

REPORT INFORMATION
  Report Type: Report from Study
  Country: IT (occurrence: IT)
  Receive Date: 20231116
  Receipt Date: 20231124
  Transmission Date: 20240110
  Serious: Yes (Other)
  Sender: FDA-Public Use
  Company Number: IT-TEVA-2023-IT-2944469

PATIENT
  Age: 72 Year
  Sex: Female

DRUGS (2)
  1. LETROZOLE [Suspect]
     Active Substance: LETROZOLE
     Indication: Hormone receptor positive HER2 negative breast cancer
     Route: 065
  2. RIBOCICLIB [Suspect]
     Active Substance: RIBOCICLIB
     Indication: Hormone receptor positive HER2 negative breast cancer
     Route: 065

REACTIONS (2)
  - Subacute cutaneous lupus erythematosus [Recovering/Resolving]
  - Pruritus [Recovered/Resolved]
